FAERS Safety Report 17635357 (Version 1)
Quarter: 2020Q2

REPORT INFORMATION
  Report Type: Spontaneous
  Country: CH (occurrence: CH)
  Receive Date: 20200407
  Receipt Date: 20200407
  Transmission Date: 20200713
  Serious: Yes (Death)
  Sender: FDA-Public Use
  Company Number: CH-TEVA-2020-CH-1219008

PATIENT
  Age: 70 Year
  Sex: Male

DRUGS (16)
  1. AMLODIPINE BESILATE [Concomitant]
     Active Substance: AMLODIPINE BESYLATE
  2. TOREM [Concomitant]
     Active Substance: TORSEMIDE
  3. PANTOZOL [Concomitant]
     Active Substance: PANTOPRAZOLE SODIUM
  4. LAXOBERON [Concomitant]
     Active Substance: SODIUM PICOSULFATE
  5. NOPIL FORTE [Suspect]
     Active Substance: SULFAMETHOXAZOLE\TRIMETHOPRIM
     Indication: INFECTION PROPHYLAXIS
     Dosage: SULFAMETHOXAZOLE / TIOMETHOPRIM = 800/160 MG
     Route: 048
  6. TIVICAY [Concomitant]
     Active Substance: DOLUTEGRAVIR SODIUM
  7. ZIAGEN [Concomitant]
     Active Substance: ABACAVIR SULFATE
     Dates: end: 20190920
  8. PREDNISONE. [Concomitant]
     Active Substance: PREDNISONE
  9. VITAMIN D3 [Concomitant]
     Active Substance: CHOLECALCIFEROL
  10. 3TC [Interacting]
     Active Substance: LAMIVUDINE
     Indication: HIV INFECTION
     Route: 048
     Dates: start: 201905, end: 20190920
  11. MYFORTIC [Concomitant]
     Active Substance: MYCOPHENOLATE SODIUM
  12. PROGRAF [Concomitant]
     Active Substance: TACROLIMUS
  13. ASPIRIN CARDIO [Concomitant]
     Active Substance: ASPIRIN
  14. PHYSIOTENS MITE [Concomitant]
  15. CONCOR [Concomitant]
     Active Substance: BISOPROLOL FUMARATE
  16. VALCYTE [Concomitant]
     Active Substance: VALGANCICLOVIR HYDROCHLORIDE

REACTIONS (3)
  - Lactic acidosis [Fatal]
  - Inadequate haemodialysis [Fatal]
  - Drug interaction [Fatal]

NARRATIVE: CASE EVENT DATE: 201909
